FAERS Safety Report 7678492-4 (Version None)
Quarter: 2011Q3

REPORT INFORMATION
  Report Type: 
  Country: None (occurrence: None)
  Receive Date: 20110811
  Receipt Date: 20110810
  Transmission Date: 20111222
  Serious: Yes (Other)
  Sender: FDA-Public Use
  Company Number: CN-PFIZER INC-2011181733

PATIENT

DRUGS (1)
  1. ZOLOFT [Suspect]
     Indication: DEPRESSION

REACTIONS (4)
  - IIIRD NERVE PARALYSIS [None]
  - HEPATIC FUNCTION ABNORMAL [None]
  - DEMYELINATION [None]
  - NEUROPATHY PERIPHERAL [None]
